FAERS Safety Report 9557547 (Version 1)
Quarter: 2013Q3

REPORT INFORMATION
  Report Type: Spontaneous
  Country: US (occurrence: None)
  Receive Date: 20130726
  Receipt Date: 20130726
  Transmission Date: 20140515
  Serious: Yes (Hospitalization)
  Sender: FDA-Public Use
  Company Number: UTC-027325

PATIENT
  Age: 51 Year
  Sex: Female
  Weight: 52 kg

DRUGS (3)
  1. REMODULIN [Suspect]
     Indication: COR PULMONALE CHRONIC
     Dosage: 57.6 UG/KG (0.04 UG/KG, 1 IN 1MIN
     Route: 041
     Dates: start: 20080702
  2. REVATIO (SILDENAFIL CITRATE) (UKNOWN) [Concomitant]
  3. LETAIRIS (AMBRISENTAN) (UNKNOWN) [Concomitant]

REACTIONS (1)
  - Device related sepsis [None]
